FAERS Safety Report 9638865 (Version 1)
Quarter: 2013Q4

REPORT INFORMATION
  Report Type: Spontaneous
  Country: US (occurrence: US)
  Receive Date: 20131022
  Receipt Date: 20131022
  Transmission Date: 20140711
  Serious: No
  Sender: FDA-Public Use
  Company Number: US-BRISTOL-MYERS SQUIBB COMPANY-19136050

PATIENT
  Age: 83 Year
  Sex: Female
  Weight: 72.56 kg

DRUGS (11)
  1. ELIQUIS [Suspect]
     Indication: ATRIAL FIBRILLATION
  2. PANTOPRAZOLE [Concomitant]
  3. DIGOXIN [Concomitant]
  4. METOPROLOL [Concomitant]
  5. TYLENOL [Concomitant]
  6. FUROSEMIDE [Concomitant]
     Dosage: 40MG
  7. TRAMADOL [Concomitant]
  8. LEVOTHYROXINE [Concomitant]
  9. POTASSIUM CHLORIDE [Concomitant]
     Dosage: 1DF:20 MEQ
  10. XALATAN [Concomitant]
     Indication: GLAUCOMA
  11. GABAPENTIN [Concomitant]

REACTIONS (4)
  - Arthralgia [Unknown]
  - Hypoaesthesia [Unknown]
  - Local swelling [Unknown]
  - Pruritus [Unknown]
